FAERS Safety Report 25655236 (Version 6)
Quarter: 2025Q4

REPORT INFORMATION
  Report Type: Spontaneous
  Country: US (occurrence: US)
  Receive Date: 20250807
  Receipt Date: 20251022
  Transmission Date: 20260117
  Serious: No
  Sender: PFIZER
  Company Number: US-PFIZER INC-202500157109

PATIENT
  Age: 8 Year
  Sex: Male

DRUGS (2)
  1. GENOTROPIN [Suspect]
     Active Substance: SOMATROPIN
     Indication: Small for dates baby
     Dosage: 0.6 MG
     Route: 058
     Dates: start: 202304
  2. GENOTROPIN [Suspect]
     Active Substance: SOMATROPIN
     Indication: Short stature
     Dosage: 0.4MG - 7 DAYS PER WEEK-SUB Q
     Route: 058

REACTIONS (3)
  - Device information output issue [Unknown]
  - Device connection issue [Unknown]
  - Drug dose omission by device [Unknown]
